FAERS Safety Report 4990750-0 (Version None)
Quarter: 2006Q2

REPORT INFORMATION
  Report Type: 
  Country: None (occurrence: None)
  Receive Date: 20060428
  Receipt Date: 20060411
  Transmission Date: 20061013
  Serious: No
  Sender: FDA-Public Use
  Company Number: CA200603000636

PATIENT
  Age: 11 Year
  Sex: Male

DRUGS (1)
  1. STRATTERA [Suspect]
     Indication: ATTENTION DEFICIT/HYPERACTIVITY DISORDER

REACTIONS (5)
  - LEUKOPENIA [None]
  - LYMPHOCYTE COUNT DECREASED [None]
  - NEUTROPHIL COUNT DECREASED [None]
  - THROMBOCYTOPENIA [None]
  - VIRAL INFECTION [None]
